FAERS Safety Report 5859733-2 (Version None)
Quarter: 2008Q3

REPORT INFORMATION
  Report Type: 
  Country: None (occurrence: None)
  Receive Date: 20080827
  Receipt Date: 20080818
  Transmission Date: 20090109
  Serious: Yes (Other)
  Sender: FDA-Public Use
  Company Number: CZ-TEVA-176255ISR

PATIENT
  Age: 56 Year
  Sex: Female

DRUGS (2)
  1. TAMOXIFEN CITRATE [Interacting]
  2. ACITRETIN [Suspect]

REACTIONS (3)
  - DRUG INTERACTION [None]
  - ELECTROCARDIOGRAM QT PROLONGED [None]
  - SINUS BRADYCARDIA [None]
